FAERS Safety Report 8499111-3 (Version None)
Quarter: 2012Q2

REPORT INFORMATION
  Report Type: 
  Country: None (occurrence: None)
  Receive Date: 20120405
  Receipt Date: 20100330
  Transmission Date: 20120825
  Serious: Yes (Other)
  Sender: FDA-Public Use
  Company Number: PHHY2010US08570

PATIENT
  Age: 62 Year
  Sex: Female

DRUGS (4)
  1. BONIVA [Concomitant]
  2. FOSAMAX [Concomitant]
  3. RECLAST [Suspect]
     Dosage: 5 MG, INTRAVENOUS, 5 MG, INTRAVENOUS
     Route: 042
     Dates: start: 20080601
  4. RECLAST [Suspect]
     Dosage: 5 MG, INTRAVENOUS, 5 MG, INTRAVENOUS
     Route: 042
     Dates: start: 20090801

REACTIONS (5)
  - STOMATITIS [None]
  - SWELLING [None]
  - ORAL SURGERY [None]
  - HEARING IMPAIRED [None]
  - OSTEONECROSIS OF JAW [None]
